FAERS Safety Report 8267839-6 (Version None)
Quarter: 2012Q2

REPORT INFORMATION
  Report Type: 
  Country: None (occurrence: None)
  Receive Date: 20120405
  Receipt Date: 20120405
  Transmission Date: 20120825
  Serious: Yes (Hospitalization)
  Sender: FDA-Public Use
  Company Number: None

PATIENT
  Age: 75 Year
  Sex: Female
  Weight: 86.5 kg

DRUGS (12)
  1. SYNTHROID [Concomitant]
  2. ASPIRIN [Suspect]
     Dosage: 81 MG DAILY PO CHRONIC
  3. CLONAZEPAM [Concomitant]
  4. VICODIN [Concomitant]
  5. WELLBUTRIN XL [Concomitant]
  6. GLUCOPHAGE [Concomitant]
  7. PRAVASTATIN [Concomitant]
  8. BYSTOLIE [Concomitant]
  9. LOSARTAN POTASSIUM [Concomitant]
  10. MOBIC [Suspect]
     Indication: ARTHRITIS
     Dosage: 7.5 MG BID PO RECENT
  11. SERTRALINE HYDROCHLORIDE [Concomitant]
  12. LANTUS [Concomitant]

REACTIONS (3)
  - UPPER GASTROINTESTINAL HAEMORRHAGE [None]
  - GASTRIC ULCER HAEMORRHAGE [None]
  - HAEMORRHAGIC ANAEMIA [None]
